FAERS Safety Report 4815196-7 (Version None)
Quarter: 2005Q4

REPORT INFORMATION
  Report Type: 
  Country: None (occurrence: None)
  Receive Date: 20051028
  Receipt Date: 20050727
  Transmission Date: 20060501
  Serious: Yes (Hospitalization, Disabling)
  Sender: FDA-Public Use
  Company Number: CA-MERCK-0507CAN00208

PATIENT
  Age: 54 Year
  Sex: Female
  Weight: 57 kg

DRUGS (12)
  1. VIOXX [Suspect]
     Indication: BACK PAIN
     Route: 048
     Dates: start: 20000101, end: 20040101
  2. VIOXX [Suspect]
     Route: 048
     Dates: start: 20000101, end: 20040101
  3. VIOXX [Suspect]
     Indication: ARTHRITIS
     Route: 048
     Dates: start: 20000101, end: 20040101
  4. VIOXX [Suspect]
     Route: 048
     Dates: start: 20000101, end: 20040101
  5. ESOMEPRAZOLE MAGNESIUM [Concomitant]
     Indication: GASTROOESOPHAGEAL REFLUX DISEASE
     Route: 065
  6. HYDROXYCHLOROQUINE SULFATE [Concomitant]
     Indication: ARTHRITIS
     Route: 065
     Dates: start: 19970101, end: 20030901
  7. RANITIDINE HYDROCHLORIDE [Concomitant]
     Indication: GASTROOESOPHAGEAL REFLUX DISEASE
     Route: 065
  8. ALENDRONATE SODIUM [Concomitant]
     Indication: OSTEOPOROSIS PROPHYLAXIS
     Route: 048
  9. CYCLOBENZAPRINE HYDROCHLORIDE [Concomitant]
     Indication: MYALGIA
     Route: 065
     Dates: start: 20000501
  10. CYCLOBENZAPRINE HYDROCHLORIDE [Concomitant]
     Indication: ARTHRALGIA
     Route: 065
     Dates: start: 20000501
  11. ZOPICLONE [Concomitant]
     Indication: FIBROMYALGIA
     Route: 065
  12. ACETAMINOPHEN [Concomitant]
     Indication: ARTHRALGIA
     Route: 065
     Dates: end: 20030101

REACTIONS (3)
  - ACUTE MYOCARDIAL INFARCTION [None]
  - ANGINA UNSTABLE [None]
  - CORONARY ARTERY DISEASE [None]
